FAERS Safety Report 8522482-6 (Version None)
Quarter: 2012Q3

REPORT INFORMATION
  Report Type: 
  Country: None (occurrence: None)
  Receive Date: 20120719
  Receipt Date: 20120717
  Transmission Date: 20120928
  Serious: Yes (Death)
  Sender: FDA-Public Use
  Company Number: CA-ELI_LILLY_AND_COMPANY-CA201207005336

PATIENT

DRUGS (1)
  1. ADCIRCA [Suspect]
     Dosage: 20 MG, UNK

REACTIONS (1)
  - DEATH [None]
